FAERS Safety Report 6625890-3 (Version None)
Quarter: 2010Q1

REPORT INFORMATION
  Report Type: 
  Country: None (occurrence: None)
  Receive Date: 20100310
  Receipt Date: 20100302
  Transmission Date: 20100710
  Serious: Yes (Disabling)
  Sender: FDA-Public Use
  Company Number: US-ABBOTT-09P-163-0610706-00

PATIENT
  Sex: Male
  Weight: 68.1 kg

DRUGS (1)
  1. HUMIRA [Suspect]
     Indication: CROHN'S DISEASE
     Dates: start: 20080201, end: 20090901

REACTIONS (2)
  - MULTIPLE SCLEROSIS [None]
  - OPTIC NEURITIS [None]
